FAERS Safety Report 4759826-7 (Version None)
Quarter: 2005Q3

REPORT INFORMATION
  Report Type: 
  Country: None (occurrence: None)
  Receive Date: 20050831
  Receipt Date: 20050831
  Transmission Date: 20060218
  Serious: Yes (Hospitalization)
  Sender: FDA-Public Use
  Company Number: None

PATIENT
  Age: 74 Year
  Sex: Female

DRUGS (9)
  1. WARFARIN     2.5 MG [Suspect]
     Indication: ATRIAL FIBRILLATION
     Dosage: WARFARIN   1.25 MG   PO
     Route: 048
  2. ASPIRIN [Concomitant]
  3. AMIODARONE [Concomitant]
  4. DIGOXIN -LANOXIN(R)- [Concomitant]
  5. ATORVASTATIN -LIPITOR(R)- [Concomitant]
  6. BENAZEPRIL  -LOTENSIN(R)- [Concomitant]
  7. FAMOTIDINE -PEPCID(R)- [Concomitant]
  8. METOPROLOL -LOPRESSOR(R)- [Concomitant]
  9. ALDACTONE [Concomitant]

REACTIONS (5)
  - EPISTAXIS [None]
  - HAEMATOCRIT DECREASED [None]
  - HAEMOGLOBIN DECREASED [None]
  - INTERNATIONAL NORMALISED RATIO INCREASED [None]
  - OCCULT BLOOD POSITIVE [None]
